FAERS Safety Report 11588207 (Version 2)
Quarter: 2015Q4

REPORT INFORMATION
  Report Type: Spontaneous
  Country: JP (occurrence: JP)
  Receive Date: 20151002
  Receipt Date: 20151231
  Transmission Date: 20160304
  Serious: Yes (Death, Hospitalization, Other)
  Sender: FDA-Public Use
  Company Number: JP-009507513-1509JPN014101

PATIENT
  Age: 67 Year
  Sex: Male
  Weight: 43 kg

DRUGS (20)
  1. LANSOPRAZOLE. [Concomitant]
     Active Substance: LANSOPRAZOLE
     Dosage: 15 MG, QD
     Route: 050
     Dates: start: 20150813, end: 20150925
  2. CARBOCYSTEINE [Concomitant]
     Active Substance: CARBOCYSTEINE
     Dosage: 500 MG, TID
     Route: 050
     Dates: start: 20150813, end: 20150925
  3. AMBISOME [Concomitant]
     Active Substance: AMPHOTERICIN B
     Indication: PNEUMONIA
     Dosage: 100 MG, QD
     Route: 042
     Dates: start: 20150824, end: 20150831
  4. NEOPAREN [Concomitant]
     Active Substance: AMINO ACIDS\DEXTROSE\ELECTROLYTES NOS
     Indication: ELECTROLYTE SUBSTITUTION THERAPY
     Dosage: 2000 ML, QD
     Route: 042
     Dates: start: 20150828, end: 20150925
  5. VANCOMYCIN HYDROCHLORIDE. [Concomitant]
     Active Substance: VANCOMYCIN HYDROCHLORIDE
     Indication: DEVICE RELATED INFECTION
  6. TANATRIL [Concomitant]
     Active Substance: IMIDAPRIL
     Dosage: 5 MG, QD
     Route: 050
     Dates: start: 20150813, end: 20150925
  7. TEICOPLANIN [Suspect]
     Active Substance: TEICOPLANIN
     Indication: PNEUMONIA
     Dosage: 400 MG, BID
     Route: 042
     Dates: start: 20150902, end: 20150915
  8. TEICOPLANIN [Suspect]
     Active Substance: TEICOPLANIN
     Indication: DEVICE RELATED INFECTION
  9. OMEPRAL [Concomitant]
     Active Substance: OMEPRAZOLE
     Dosage: 20 MG, BID
     Route: 065
  10. VANCOMYCIN HYDROCHLORIDE. [Concomitant]
     Active Substance: VANCOMYCIN HYDROCHLORIDE
     Indication: PNEUMONIA
     Dosage: 500 MG, BID
     Route: 042
     Dates: start: 20150824, end: 20150829
  11. GASCON (DIMETHICONE) [Concomitant]
     Active Substance: DIMETHICONE
     Dosage: 40 MG, TID
     Route: 050
     Dates: start: 20150813, end: 20150925
  12. NEOPHAGEN INJECTION [Concomitant]
     Dosage: 40 MG, BID
     Route: 042
     Dates: start: 20150828, end: 20150925
  13. CUBICIN [Suspect]
     Active Substance: DAPTOMYCIN
     Indication: PNEUMONIA
     Dosage: 245 MG, QD
     Route: 041
     Dates: start: 20150829, end: 20150901
  14. CUBICIN [Suspect]
     Active Substance: DAPTOMYCIN
     Indication: DEVICE RELATED INFECTION
  15. DAI-KENCHU-TO [Concomitant]
     Active Substance: MALTOSE
     Dosage: 2.5 G, TID
     Route: 050
     Dates: start: 20150813, end: 20150925
  16. MUCOBULIN [Concomitant]
     Active Substance: AMBROXOL HYDROCHLORIDE
     Dosage: 45 MG, TID
     Route: 050
     Dates: start: 20150813, end: 20150925
  17. AMBISOME [Concomitant]
     Active Substance: AMPHOTERICIN B
     Indication: DEVICE RELATED INFECTION
  18. PANTHENOL [Concomitant]
     Active Substance: PANTHENOL
     Indication: VITAMIN SUPPLEMENTATION
     Dosage: 500 MG, BID
     Route: 042
     Dates: start: 20150828, end: 20150925
  19. ASPARA POTASSIUM [Concomitant]
     Active Substance: POTASSIUM ASPARTATE
     Indication: ELECTROLYTE SUBSTITUTION THERAPY
     Dosage: 10 MG, BID, MIXED WITH NEOPAREN
     Route: 042
     Dates: start: 20150823, end: 20150925
  20. YOKU-KAN-SAN [Concomitant]
     Dosage: 2.5 MG, TID
     Route: 050
     Dates: start: 20150813, end: 20150925

REACTIONS (2)
  - Hepatic function abnormal [Recovering/Resolving]
  - Death [Fatal]

NARRATIVE: CASE EVENT DATE: 20150829
